FAERS Safety Report 22242796 (Version 2)
Quarter: 2023Q2

REPORT INFORMATION
  Report Type: Spontaneous
  Country: US (occurrence: US)
  Receive Date: 20230424
  Receipt Date: 20230518
  Transmission Date: 20230722
  Serious: No
  Sender: FDA-Public Use
  Company Number: US-SA-SAC20230420001116

PATIENT
  Age: 30 Year
  Sex: Female
  Weight: 81.6 kg

DRUGS (1)
  1. DUPIXENT [Suspect]
     Active Substance: DUPILUMAB
     Indication: Dermatitis atopic
     Dosage: 600 MG, 1X
     Route: 058
     Dates: start: 20230412, end: 20230412

REACTIONS (6)
  - Injection site pain [Unknown]
  - Injection site urticaria [Unknown]
  - Skin weeping [Unknown]
  - Urticaria [Unknown]
  - Erythema [Unknown]
  - Injection site erythema [Unknown]

NARRATIVE: CASE EVENT DATE: 20230401
